FAERS Safety Report 9018388 (Version 1)
Quarter: 2013Q1

REPORT INFORMATION
  Report Type: Spontaneous
  Country: US (occurrence: US)
  Receive Date: 20130118
  Receipt Date: 20130118
  Transmission Date: 20140127
  Serious: No
  Sender: FDA-Public Use
  Company Number: US-PFIZER INC-2013020671

PATIENT
  Age: 81 Year
  Sex: Female
  Weight: 83 kg

DRUGS (3)
  1. ADVIL PM [Suspect]
     Indication: INSOMNIA
     Dosage: UNK, ONCE A DAY
     Dates: start: 201301, end: 20130108
  2. ALLOPURINOL [Concomitant]
     Indication: GOUT
     Dosage: UNK
  3. HYDROCHLOROTHIAZIDE [Concomitant]
     Dosage: UNK

REACTIONS (1)
  - Oral pain [Recovered/Resolved]
